FAERS Safety Report 20694794 (Version 2)
Quarter: 2024Q1

REPORT INFORMATION
  Report Type: Spontaneous
  Country: DE (occurrence: DE)
  Receive Date: 20220411
  Receipt Date: 20240123
  Transmission Date: 20240410
  Serious: Yes (Other)
  Sender: FDA-Public Use
  Company Number: DE-SUN PHARMACEUTICAL INDUSTRIES LTD-2022RR-332552

PATIENT
  Age: 30 Year
  Sex: Male
  Weight: 67 kg

DRUGS (4)
  1. OXALIPLATIN [Suspect]
     Active Substance: OXALIPLATIN
     Indication: Adenocarcinoma gastric
     Dosage: 85 MILLIGRAM/SQ. METER, 6 CYCLES
     Route: 065
  2. DOCETAXEL [Suspect]
     Active Substance: DOCETAXEL\DOCETAXEL ANHYDROUS
     Indication: Adenocarcinoma gastric
     Dosage: 50 MILLIGRAM/SQ. METER, BIWEEKLY, 6 CYCLES
     Route: 065
  3. LEUCOVORIN CALCIUM [Suspect]
     Active Substance: LEUCOVORIN CALCIUM
     Indication: Adenocarcinoma gastric
     Dosage: 200 MILLIGRAM/SQ. METER, 6 CYCLES
     Route: 065
  4. FLUOROURACIL [Suspect]
     Active Substance: FLUOROURACIL
     Indication: Adenocarcinoma gastric
     Dosage: 2400 MILLIGRAM/SQ. METER, CIV 24 H, 6 CYCLES
     Route: 065

REACTIONS (9)
  - Tumour lysis syndrome [Unknown]
  - Onycholysis [Unknown]
  - Erythema [Unknown]
  - Eczema [Unknown]
  - Paronychia [Unknown]
  - Pleural effusion [Unknown]
  - Ascites [Recovering/Resolving]
  - Haematotoxicity [Unknown]
  - Polyneuropathy [Recovering/Resolving]
